FAERS Safety Report 6411231-3 (Version None)
Quarter: 2009Q4

REPORT INFORMATION
  Report Type: 
  Country: None (occurrence: None)
  Receive Date: 20091020
  Receipt Date: 20091009
  Transmission Date: 20100525
  Serious: Yes (Hospitalization)
  Sender: FDA-Public Use
  Company Number: TCI2009A04112

PATIENT
  Age: 80 Year
  Sex: Male

DRUGS (3)
  1. ACTOS [Suspect]
     Indication: DIABETES MELLITUS
     Dosage: PER ORAL
     Route: 048
  2. BASEN (VOGLIBOSE) [Concomitant]
  3. AMARYL [Concomitant]

REACTIONS (1)
  - EOSINOPHILIC PNEUMONIA [None]
